FAERS Safety Report 22211871 (Version 1)
Quarter: 2023Q2

REPORT INFORMATION
  Report Type: Spontaneous
  Country: CA (occurrence: CA)
  Receive Date: 20230414
  Receipt Date: 20230414
  Transmission Date: 20230722
  Serious: Yes (Hospitalization)
  Sender: FDA-Public Use
  Company Number: CA-PFIZER INC-202300152192

PATIENT
  Age: 60 Year
  Sex: Male

DRUGS (4)
  1. METRONIDAZOLE [Interacting]
     Active Substance: METRONIDAZOLE
     Dosage: UNK
  2. AMOXICILLIN [Interacting]
     Active Substance: AMOXICILLIN
     Dosage: UNK
  3. CLARITHROMYCIN [Interacting]
     Active Substance: CLARITHROMYCIN
     Dosage: UNK
  4. WARFARIN [Interacting]
     Active Substance: WARFARIN
     Dosage: UNK

REACTIONS (4)
  - Drug interaction [Unknown]
  - Gastrointestinal haemorrhage [Unknown]
  - International normalised ratio increased [Unknown]
  - Melaena [Unknown]
